FAERS Safety Report 12439842 (Version 2)
Quarter: 2016Q3

REPORT INFORMATION
  Report Type: Spontaneous
  Country: FR (occurrence: FR)
  Receive Date: 20160606
  Receipt Date: 20160722
  Transmission Date: 20161109
  Serious: Yes (Hospitalization)
  Sender: FDA-Public Use
  Company Number: FR-SA-2016SA105617

PATIENT
  Age: 87 Year
  Sex: Female
  Weight: 64 kg

DRUGS (6)
  1. COVERSYL [Concomitant]
     Active Substance: PERINDOPRIL
     Dosage: COVERSYL 5 MG TABLET
     Route: 048
     Dates: start: 20160410
  2. KARDEGIC [Suspect]
     Active Substance: ASPIRIN LYSINE
     Indication: PROPHYLAXIS
     Route: 048
     Dates: start: 20160412, end: 20160419
  3. LEVOTHYROX [Concomitant]
     Active Substance: LEVOTHYROXINE
     Dosage: LEVOTHYROX 125 MCG TABLE
     Route: 048
     Dates: start: 20160410
  4. LOVENOX [Suspect]
     Active Substance: ENOXAPARIN SODIUM
     Indication: PROPHYLAXIS
     Route: 058
     Dates: start: 20160414, end: 20160419
  5. EBIXA [Concomitant]
     Active Substance: MEMANTINE HYDROCHLORIDE
     Dosage: EBIXA 10 MG TABLET
     Route: 048
     Dates: start: 20160410
  6. BURINEX [Concomitant]
     Active Substance: BUMETANIDE
     Dosage: 5 MG  STRENGTH
     Route: 048
     Dates: start: 20160410

REACTIONS (3)
  - Haematoma [Not Recovered/Not Resolved]
  - Purpura [Not Recovered/Not Resolved]
  - Oedema [Not Recovered/Not Resolved]

NARRATIVE: CASE EVENT DATE: 20160418
